FAERS Safety Report 10204397 (Version 2)
Quarter: 2014Q2

REPORT INFORMATION
  Report Type: Report from Study
  Country: CA (occurrence: CA)
  Receive Date: 20140529
  Receipt Date: 20140610
  Transmission Date: 20141212
  Serious: Yes (Hospitalization, Other)
  Sender: FDA-Public Use
  Company Number: CA-ABBVIE-14P-028-1240352-00

PATIENT
  Age: 65 Year
  Sex: Male
  Weight: 75.82 kg

DRUGS (2)
  1. HUMIRA [Suspect]
     Indication: RHEUMATOID ARTHRITIS
     Route: 058
     Dates: start: 20060314
  2. HUMIRA [Suspect]
     Route: 058
     Dates: start: 20140217

REACTIONS (4)
  - Arteriosclerosis [Unknown]
  - Coronary artery occlusion [Recovering/Resolving]
  - Tachycardia [Unknown]
  - Asthma [Unknown]
